FAERS Safety Report 4926814-7 (Version None)
Quarter: 2006Q1

REPORT INFORMATION
  Report Type: 
  Country: None (occurrence: None)
  Receive Date: 20060228
  Receipt Date: 20050622
  Transmission Date: 20060701
  Serious: No
  Sender: FDA-Public Use
  Company Number: US-GLAXOSMITHKLINE-A0563808A

PATIENT
  Age: 59 Year
  Sex: Female

DRUGS (6)
  1. LAMICTAL [Suspect]
     Indication: DEPRESSION
     Dosage: 25MG PER DAY
     Route: 048
     Dates: start: 20050615, end: 20050621
  2. DILANTIN [Concomitant]
  3. SYNTHROID [Concomitant]
  4. MULTIVITAMIN [Concomitant]
  5. CALCIUM GLUCONATE [Concomitant]
  6. ACTONEL [Concomitant]

REACTIONS (2)
  - CRYING [None]
  - DEPRESSION [None]
